FAERS Safety Report 8785542 (Version 1)
Quarter: 2012Q4

REPORT INFORMATION
  Report Type: Spontaneous
  Country: US (occurrence: None)
  Receive Date: 20120830
  Receipt Date: 20120830
  Transmission Date: 20130627
  Serious: Yes (Other)
  Sender: FDA-Public Use
  Company Number: DSA_59105_2012

PATIENT
  Age: 36 Year
  Sex: Female

DRUGS (10)
  1. BUPROPION HYDROCHLORIDE [Suspect]
  2. VENLAFAXINE HYDROCHLORIDE [Suspect]
  3. LITHIUM SALT [Suspect]
  4. LAMOTRIGINE [Suspect]
  5. ONDANSETRON HYDROCHLORIDE [Concomitant]
  6. SERTRALINE [Suspect]
  7. LOXAPINE [Suspect]
  8. TRAZODONE [Suspect]
  9. CIPROFLOXACIN [Concomitant]
  10. PARACETAMOL [Concomitant]

REACTIONS (6)
  - Neuroleptic malignant syndrome [None]
  - Urinary tract infection [None]
  - Diarrhoea [None]
  - Toxicity to various agents [None]
  - Serotonin syndrome [None]
  - Hepatotoxicity [None]
